FAERS Safety Report 4951264-7 (Version None)
Quarter: 2006Q1

REPORT INFORMATION
  Report Type: 
  Country: None (occurrence: None)
  Receive Date: 20060323
  Receipt Date: 20060314
  Transmission Date: 20060701
  Serious: Yes (Other)
  Sender: FDA-Public Use
  Company Number: FR-JNJFOC-20040603859

PATIENT
  Age: 28 Year
  Sex: Male
  Weight: 65 kg

DRUGS (3)
  1. REMICADE [Suspect]
     Route: 042
  2. REMICADE [Suspect]
     Route: 042
  3. REMICADE [Suspect]
     Indication: ANKYLOSING SPONDYLITIS
     Dosage: 3 INFUSIONS
     Route: 042

REACTIONS (7)
  - ABDOMINAL NEOPLASM [None]
  - CHOROID MELANOMA [None]
  - CHOROID NEOPLASM [None]
  - DISSEMINATED TUBERCULOSIS [None]
  - FUNGAL INFECTION [None]
  - RETINAL VEIN OCCLUSION [None]
  - TUBERCULOSIS [None]
